FAERS Safety Report 19897465 (Version 1)
Quarter: 2021Q3

REPORT INFORMATION
  Report Type: Spontaneous
  Country: TR (occurrence: TR)
  Receive Date: 20210930
  Receipt Date: 20210930
  Transmission Date: 20211014
  Serious: Yes (Death, Life-Threatening, Hospitalization, Disabling, Other)
  Sender: FDA-Public Use
  Company Number: TR-GRANULES-TR-2021GRALIT00494

PATIENT
  Age: 17 Year
  Sex: Male

DRUGS (5)
  1. METFORMIN HCL [Suspect]
     Active Substance: METFORMIN HYDROCHLORIDE
     Indication: PRODUCT USED FOR UNKNOWN INDICATION
     Dosage: METFORMIN 500MG PILLS
     Route: 048
  2. NOREPINEPHRINE. [Interacting]
     Active Substance: NOREPINEPHRINE
     Indication: HYPOTENSION
     Route: 065
  3. HEPARIN [Interacting]
     Active Substance: HEPARIN SODIUM
     Indication: SUPPORTIVE CARE
     Route: 065
  4. EPINEPHRINE. [Interacting]
     Active Substance: EPINEPHRINE
     Indication: HYPOTENSION
     Route: 065
  5. MILRINONE [Interacting]
     Active Substance: MILRINONE
     Indication: SUPPORTIVE CARE
     Route: 065

REACTIONS (9)
  - Rhabdomyolysis [Fatal]
  - Thrombocytopenia [Fatal]
  - Multiple organ dysfunction syndrome [Fatal]
  - Diabetic ketoacidosis [Fatal]
  - Intentional product misuse [Fatal]
  - Overdose [Fatal]
  - Cardiac arrest [Recovered/Resolved]
  - Toxicity to various agents [Fatal]
  - Sepsis [Fatal]
